FAERS Safety Report 8524456-8 (Version None)
Quarter: 2012Q3

REPORT INFORMATION
  Report Type: 
  Country: None (occurrence: None)
  Receive Date: 20120720
  Receipt Date: 20120716
  Transmission Date: 20120928
  Serious: No
  Sender: FDA-Public Use
  Company Number: US-PFIZER INC-2012171378

PATIENT
  Sex: Female
  Weight: 17 kg

DRUGS (1)
  1. ARGININE HCL [Suspect]
     Indication: BLOOD GROWTH HORMONE
     Dosage: 0.5 MG/KG, SINGLE
     Route: 042
     Dates: start: 20120713

REACTIONS (4)
  - NAUSEA [None]
  - VOMITING [None]
  - DIARRHOEA [None]
  - OFF LABEL USE [None]
